FAERS Safety Report 20023622 (Version 2)
Quarter: 2021Q4

REPORT INFORMATION
  Report Type: Report from Study
  Country: EG (occurrence: EG)
  Receive Date: 20211102
  Receipt Date: 20211105
  Transmission Date: 20220303
  Serious: Yes (Other)
  Sender: FDA-Public Use
  Company Number: EG-NOVARTISPH-NVSC2021EG212368

PATIENT
  Age: 38 Year
  Sex: Male

DRUGS (10)
  1. GILENYA [Suspect]
     Active Substance: FINGOLIMOD HYDROCHLORIDE
     Indication: Multiple sclerosis
     Dosage: 0.5 MG, QD
     Route: 048
     Dates: start: 202105, end: 20210720
  2. GILENYA [Suspect]
     Active Substance: FINGOLIMOD HYDROCHLORIDE
     Dosage: 0.5 MG, QD
     Route: 048
     Dates: start: 20210908
  3. GILENYA [Suspect]
     Active Substance: FINGOLIMOD HYDROCHLORIDE
     Dosage: 0.5 MG, QD
     Route: 048
     Dates: start: 20210911
  4. SOLUPRED [Concomitant]
     Indication: Multiple sclerosis
     Dosage: UNK
     Route: 065
     Dates: start: 2017
  5. SOLUPRED [Concomitant]
     Dosage: UNK, QD
     Route: 048
     Dates: start: 2018
  6. SOLUPRED [Concomitant]
     Dosage: 2 DF, QD
     Route: 048
     Dates: start: 2018
  7. DEPOVIT B12 [Concomitant]
     Indication: Nerve injury
     Dosage: 1 DF, QW (1 AMP PER WEEK)
     Route: 030
     Dates: start: 2017
  8. BENFOTIAMINE\CYANOCOBALAMIN\PYRIDOXINE HYDROCHLORIDE [Concomitant]
     Active Substance: BENFOTIAMINE\CYANOCOBALAMIN\PYRIDOXINE HYDROCHLORIDE
     Indication: Nerve injury
     Dosage: 1 DF, QD
     Route: 048
     Dates: start: 2017
  9. NEUROMAX [Concomitant]
     Indication: Nerve injury
     Dosage: 1 DF, QD
     Route: 048
     Dates: start: 2017
  10. SOLU-MEDROL [Concomitant]
     Active Substance: METHYLPREDNISOLONE SODIUM SUCCINATE
     Indication: Multiple sclerosis
     Dosage: 1 DF, QD (ONE AMP PER DAY EVERY 5 DAY)
     Route: 065
     Dates: start: 2017

REACTIONS (11)
  - Multiple sclerosis relapse [Recovered/Resolved]
  - Pain in extremity [Recovering/Resolving]
  - Eye pain [Recovering/Resolving]
  - Headache [Recovering/Resolving]
  - Hypoaesthesia [Not Recovered/Not Resolved]
  - Loss of control of legs [Not Recovered/Not Resolved]
  - Balance disorder [Recovering/Resolving]
  - Visual impairment [Not Recovered/Not Resolved]
  - Multiple sclerosis [Not Recovered/Not Resolved]
  - Drug ineffective [Not Recovered/Not Resolved]
  - Hypertension [Not Recovered/Not Resolved]

NARRATIVE: CASE EVENT DATE: 20210901
